FAERS Safety Report 24131696 (Version 1)
Quarter: 2024Q3

REPORT INFORMATION
  Report Type: Report from Study
  Country: US (occurrence: US)
  Receive Date: 20240724
  Receipt Date: 20240724
  Transmission Date: 20241017
  Serious: No
  Sender: MARINUS PHARMACEUTICALS
  Company Number: US-MARINUS PHARMACEUTICALS, INC.-MAR2024000136

PATIENT

DRUGS (2)
  1. GANAXOLONE [Suspect]
     Active Substance: GANAXOLONE
     Indication: Product used for unknown indication
     Dosage: 12 MILLILITER, TID
     Route: 065
     Dates: start: 20240221
  2. GANAXOLONE [Suspect]
     Active Substance: GANAXOLONE
     Dosage: 12 MILLIGRAM BID OR QD
     Route: 065

REACTIONS (1)
  - Somnolence [Unknown]
